FAERS Safety Report 7942162-5 (Version None)
Quarter: 2011Q4

REPORT INFORMATION
  Report Type: 
  Country: None (occurrence: None)
  Receive Date: 20111123
  Receipt Date: 20111123
  Transmission Date: 20120403
  Serious: Yes (Other)
  Sender: FDA-Public Use
  Company Number: None

PATIENT
  Age: 63 Year
  Sex: Female
  Weight: 48.5349 kg

DRUGS (1)
  1. VALSARTAN [Suspect]
     Indication: HYPERTENSION
     Dosage: 1 TABLET PER DAY

REACTIONS (7)
  - INSOMNIA [None]
  - PRODUCT SUBSTITUTION ISSUE [None]
  - CHEST DISCOMFORT [None]
  - PALPITATIONS [None]
  - FEAR [None]
  - HEART RATE IRREGULAR [None]
  - DYSPHAGIA [None]
